FAERS Safety Report 24380262 (Version 2)
Quarter: 2025Q1

REPORT INFORMATION
  Report Type: Other
  Country: US (occurrence: US)
  Receive Date: 20240930
  Receipt Date: 20250307
  Transmission Date: 20250409
  Serious: Yes (Hospitalization)
  Sender: TRAVERE THERAPEUTICS
  Company Number: US-TRAVERE-2024TVT00888

PATIENT
  Sex: Female

DRUGS (2)
  1. FILSPARI [Suspect]
     Active Substance: SPARSENTAN
     Indication: IgA nephropathy
     Dosage: MISS AT LEAST ONE DOSE OF FILSPARI
     Route: 048
     Dates: start: 20240912, end: 202502
  2. FILSPARI [Suspect]
     Active Substance: SPARSENTAN
     Route: 048
     Dates: start: 202502

REACTIONS (3)
  - Urinary tract infection [Recovered/Resolved]
  - Hypersensitivity [Unknown]
  - Cough [Unknown]
